FAERS Safety Report 4566172-3 (Version None)
Quarter: 2005Q1

REPORT INFORMATION
  Report Type: 
  Country: None (occurrence: None)
  Receive Date: 20050201
  Receipt Date: 20050120
  Transmission Date: 20050727
  Serious: Yes (Hospitalization, Other)
  Sender: FDA-Public Use
  Company Number: US-JNJFOC-20050105714

PATIENT
  Sex: Female
  Weight: 61.24 kg

DRUGS (11)
  1. INFLIXIMAB [Suspect]
     Indication: RHEUMATOID ARTHRITIS
     Route: 042
  2. PREDNISONE [Concomitant]
     Dosage: 2.5 - 20 MG DAILY
  3. METHOTREXATE [Concomitant]
  4. PLAQUENIL [Concomitant]
  5. NAPROXEN [Concomitant]
  6. SYNTHROID [Concomitant]
  7. CALCIUM/MAGNESIUM [Concomitant]
  8. CALCIUM/MAGNESIUM [Concomitant]
  9. OMEGA 3 [Concomitant]
  10. VITAMIN B6 [Concomitant]
  11. FOLIC ACID [Concomitant]

REACTIONS (2)
  - ANAEMIA [None]
  - MANTLE CELL LYMPHOMA [None]
